FAERS Safety Report 5923259-8 (Version None)
Quarter: 2008Q4

REPORT INFORMATION
  Report Type: 
  Country: None (occurrence: None)
  Receive Date: 20081015
  Receipt Date: 20081003
  Transmission Date: 20090506
  Serious: Yes (Other)
  Sender: FDA-Public Use
  Company Number: 2008SP020626

PATIENT
  Age: 4 Year
  Sex: Male

DRUGS (2)
  1. CLARITIN [Suspect]
     Indication: DRUG USE FOR UNKNOWN INDICATION
     Dosage: 10 MG; HS; PO
     Route: 048
     Dates: start: 20081001, end: 20081002
  2. CLARITIN [Suspect]
     Indication: OFF LABEL USE
     Dosage: 10 MG; HS; PO
     Route: 048
     Dates: start: 20081001, end: 20081002

REACTIONS (1)
  - HALLUCINATION [None]
